FAERS Safety Report 24755911 (Version 1)
Quarter: 2024Q4

REPORT INFORMATION
  Report Type: Spontaneous
  Country: CN (occurrence: CN)
  Receive Date: 20241219
  Receipt Date: 20241219
  Transmission Date: 20250115
  Serious: Yes (Other)
  Sender: ELI LILLY AND COMPANY
  Company Number: CN-Merck Healthcare KGaA-2024066033

PATIENT
  Age: 69 Year
  Sex: Male
  Weight: 72 kg

DRUGS (4)
  1. ERBITUX [Suspect]
     Active Substance: CETUXIMAB
     Indication: Colon cancer
     Dosage: 160 ML, UNK
     Route: 041
     Dates: start: 20240903, end: 20240903
  2. IRINOTECAN HYDROCHLORIDE [Suspect]
     Active Substance: IRINOTECAN HYDROCHLORIDE
     Indication: Colon cancer
     Dosage: 10 ML, DAILY
     Route: 041
     Dates: start: 20240903, end: 20240903
  3. SODIUM CHLORIDE [Concomitant]
     Active Substance: SODIUM CHLORIDE
     Indication: Medication dilution
     Dosage: 250 ML, DAILY
     Route: 041
     Dates: start: 20240903, end: 20240903
  4. SODIUM CHLORIDE [Concomitant]
     Active Substance: SODIUM CHLORIDE
     Dosage: 350 ML, DAILY
     Route: 041
     Dates: start: 20240903, end: 20240903

REACTIONS (2)
  - Neutropenia [Recovering/Resolving]
  - White blood cell count decreased [Recovering/Resolving]

NARRATIVE: CASE EVENT DATE: 20240914
